FAERS Safety Report 7960569-7 (Version None)
Quarter: 2011Q4

REPORT INFORMATION
  Report Type: 
  Country: None (occurrence: None)
  Receive Date: 20111206
  Receipt Date: 20111124
  Transmission Date: 20120403
  Serious: Yes (Hospitalization, Other)
  Sender: FDA-Public Use
  Company Number: BR-ROCHE-708808

PATIENT
  Sex: Female
  Weight: 74 kg

DRUGS (14)
  1. ACTEMRA [Suspect]
     Dosage: SECOND INFUSION
     Route: 065
  2. PREDNISONE TAB [Concomitant]
  3. AMYTRIL [Concomitant]
  4. ACTEMRA [Suspect]
     Dosage: FIFTH INFUSION
     Route: 065
     Dates: start: 20100417, end: 20100417
  5. ACTEMRA [Suspect]
     Dosage: FOURTH INFUSION
     Route: 065
  6. CHLOROQUINE DIPHOSPHATE [Concomitant]
  7. ACTEMRA [Suspect]
     Dosage: THIRD INFUSION
     Route: 065
  8. ACTEMRA [Suspect]
     Route: 042
  9. FOLIC ACID [Concomitant]
     Dosage: EXCEPT IN DAYS SHE USED METHOTREXATE
  10. METHOTREXATE [Concomitant]
     Dosage: FREQUENCY: 1 WEEK
  11. FLUOXETINE [Concomitant]
     Dosage: FREQUENCY: 2 DAYS
  12. ACTEMRA [Suspect]
     Indication: RHEUMATOID ARTHRITIS
     Dosage: INFUSION, DOSE:
     Route: 042
  13. DIPYRONE INJ [Concomitant]
  14. CLONAZEPAM [Concomitant]

REACTIONS (14)
  - SKIN DISCOLOURATION [None]
  - URINARY TRACT INJURY [None]
  - GRIP STRENGTH DECREASED [None]
  - PAIN [None]
  - NEPHROLITHIASIS [None]
  - HYPOAESTHESIA [None]
  - RENAL DISORDER [None]
  - ARTHRALGIA [None]
  - RHEUMATOID ARTHRITIS [None]
  - BURNING SENSATION [None]
  - BACK PAIN [None]
  - POST PROCEDURAL SWELLING [None]
  - OEDEMA PERIPHERAL [None]
  - PARAESTHESIA [None]
